FAERS Safety Report 16734119 (Version 1)
Quarter: 2019Q3

REPORT INFORMATION
  Report Type: Spontaneous
  Country: US (occurrence: US)
  Receive Date: 20190708
  Receipt Date: 20190708
  Transmission Date: 20191005
  Serious: Yes (Hospitalization)
  Sender: FDA-Public Use
  Company Number: None

PATIENT
  Age: 64 Year
  Sex: Female

DRUGS (2)
  1. ACTEMRA [Suspect]
     Active Substance: TOCILIZUMAB
     Indication: PSORIATIC ARTHROPATHY
     Route: 058
     Dates: start: 20190516
  2. CLINDAYMCIN [Concomitant]

REACTIONS (1)
  - Arthritis infective [None]
